FAERS Safety Report 8091288-7 (Version None)
Quarter: 2012Q1

REPORT INFORMATION
  Report Type: 
  Country: None (occurrence: None)
  Receive Date: 20120129
  Receipt Date: 20111031
  Transmission Date: 20120608
  Serious: No
  Sender: FDA-Public Use
  Company Number: US-ABBOTT-11P-163-0868300-00

PATIENT
  Sex: Female

DRUGS (10)
  1. PREVACID [Concomitant]
     Indication: GASTROOESOPHAGEAL REFLUX DISEASE
  2. PREDNISONE TAB [Concomitant]
     Indication: CROHN'S DISEASE
  3. HUMIRA [Suspect]
     Indication: CROHN'S DISEASE
     Route: 058
     Dates: start: 20110817
  4. TOPAMAX [Concomitant]
     Indication: MIGRAINE
  5. ASPRO [Concomitant]
     Indication: PRODUCT USED FOR UNKNOWN INDICATION
  6. IMITREX [Concomitant]
     Indication: MIGRAINE
  7. BURLAP [Concomitant]
     Indication: PRODUCT USED FOR UNKNOWN INDICATION
  8. PENSA [Concomitant]
     Indication: PRODUCT USED FOR UNKNOWN INDICATION
  9. AMBIEN [Concomitant]
     Indication: INSOMNIA
  10. CALTRATE [Concomitant]
     Indication: MINERAL SUPPLEMENTATION

REACTIONS (3)
  - PELVIC FRACTURE [None]
  - HAEMATOMA [None]
  - ARTHRALGIA [None]
